FAERS Safety Report 16757355 (Version 1)
Quarter: 2019Q3

REPORT INFORMATION
  Report Type: Spontaneous
  Country: None (occurrence: US)
  Receive Date: 20190829
  Receipt Date: 20190829
  Transmission Date: 20191005
  Serious: Yes (Death, Other)
  Sender: FDA-Public Use
  Company Number: US-JIANGSU HENGRUI MEDICINE CO., LTD.-2073858

PATIENT
  Age: 54 Year
  Sex: Male

DRUGS (4)
  1. FLUDARABINE [Suspect]
     Active Substance: FLUDARABINE PHOSPHATE
     Dates: start: 20190615, end: 20190617
  2. KYMRIAH [Suspect]
     Active Substance: TISAGENLECLEUCEL
     Dates: start: 20190620, end: 20190620
  3. CYCLOPHOSPHAMIDE FOR INJECTION USP, 500 MG, 1 G AND 2 G PER SINGLE-DOS [Suspect]
     Active Substance: CYCLOPHOSPHAMIDE
     Indication: DIFFUSE LARGE B-CELL LYMPHOMA REFRACTORY
     Dates: start: 20190615, end: 20190617
  4. KEPPRA [Concomitant]
     Active Substance: LEVETIRACETAM

REACTIONS (11)
  - Upper gastrointestinal haemorrhage [Unknown]
  - Pyrexia [Unknown]
  - Embolic stroke [Unknown]
  - Hypotension [Unknown]
  - Acute kidney injury [Unknown]
  - Coagulopathy [Unknown]
  - Death [Fatal]
  - Multiple organ dysfunction syndrome [Unknown]
  - Pneumonia fungal [Unknown]
  - Thrombocytopenia [Unknown]
  - Neoplasm progression [Unknown]

NARRATIVE: CASE EVENT DATE: 20190803
